FAERS Safety Report 6264779-9 (Version None)
Quarter: 2009Q3

REPORT INFORMATION
  Report Type: 
  Country: None (occurrence: None)
  Receive Date: 20090710
  Receipt Date: 20090706
  Transmission Date: 20100115
  Serious: Yes (Hospitalization)
  Sender: FDA-Public Use
  Company Number: JP-BRISTOL-MYERS SQUIBB COMPANY-14670137

PATIENT
  Age: 62 Year
  Weight: 59 kg

DRUGS (2)
  1. CISPLATIN [Suspect]
     Indication: CERVIX CARCINOMA
     Dosage: TAKEN ON 28APR2009, CYCLE 1
     Route: 042
     Dates: start: 20090602, end: 20090602
  2. S-1 [Suspect]
     Indication: CERVIX CARCINOMA
     Dosage: CYCLE 1: FROM 28MAY09 - 11MAY09 CYCLE 2: 02JUN09-13JUN09
     Route: 048
     Dates: start: 20090428, end: 20090613

REACTIONS (1)
  - FALLOPIAN TUBE ABSCESS [None]
